FAERS Safety Report 8568298-6 (Version None)
Quarter: 2012Q3

REPORT INFORMATION
  Report Type: 
  Country: None (occurrence: None)
  Receive Date: 20120803
  Receipt Date: 20120727
  Transmission Date: 20120928
  Serious: No
  Sender: FDA-Public Use
  Company Number: US-ABBOTT-12P-163-0961626-00

PATIENT
  Sex: Female
  Weight: 65 kg

DRUGS (3)
  1. NIASPAN [Suspect]
     Indication: BLOOD CHOLESTEROL INCREASED
     Dosage: 1 IN 1 DAY AT BEDTIME
     Dates: start: 20120721
  2. CHOLSTOFF [Concomitant]
     Indication: PRODUCT USED FOR UNKNOWN INDICATION
  3. NIASPAN [Suspect]
     Dosage: 1 IN 1 DAY AT BEDTIME
     Dates: end: 20120301

REACTIONS (2)
  - ERYTHEMA [None]
  - FLUSHING [None]
